FAERS Safety Report 21955448 (Version 2)
Quarter: 2023Q1

REPORT INFORMATION
  Report Type: Report from Study
  Country: GB (occurrence: GB)
  Receive Date: 20230206
  Receipt Date: 20230310
  Transmission Date: 20230417
  Serious: Yes (Congenital Anomaly, Other)
  Sender: FDA-Public Use
  Company Number: GB-MYLANLABS-2023M1008613

PATIENT
  Age: 0 Year
  Sex: Male
  Weight: 1.442 kg

DRUGS (5)
  1. RITONAVIR [Suspect]
     Active Substance: RITONAVIR
     Indication: Maternal exposure timing unspecified
     Route: 064
  2. EMTRICITABINE [Suspect]
     Active Substance: EMTRICITABINE
     Indication: Maternal exposure timing unspecified
     Route: 064
  3. TENOFOVIR DISOPROXIL [Suspect]
     Active Substance: TENOFOVIR DISOPROXIL
     Indication: Maternal exposure timing unspecified
     Route: 064
  4. REYATAZ [Suspect]
     Active Substance: ATAZANAVIR SULFATE
     Indication: Maternal exposure timing unspecified
     Route: 064
  5. ATAZANAVIR [Suspect]
     Active Substance: ATAZANAVIR
     Indication: Maternal exposure timing unspecified
     Route: 064

REACTIONS (10)
  - Intraventricular haemorrhage neonatal [Unknown]
  - Neonatal respiratory distress syndrome [Unknown]
  - Foetal exposure during pregnancy [Unknown]
  - Periventricular leukomalacia [Unknown]
  - White matter lesion [Unknown]
  - Neonatal seizure [Unknown]
  - Cytogenetic abnormality [Unknown]
  - Pulmonary haemorrhage neonatal [Unknown]
  - Hyperbilirubinaemia neonatal [Unknown]
  - Premature baby [Unknown]

NARRATIVE: CASE EVENT DATE: 20221025
